FAERS Safety Report 4480128-0 (Version None)
Quarter: 2004Q4

REPORT INFORMATION
  Report Type: 
  Country: None (occurrence: None)
  Receive Date: 20041018
  Receipt Date: 20041001
  Transmission Date: 20050328
  Serious: Yes (Hospitalization)
  Sender: FDA-Public Use
  Company Number: 2004-BP-07631NB

PATIENT
  Age: 72 Year
  Sex: Female

DRUGS (5)
  1. BI-SIFROL TABLETS(PRAMPEXOLE DIHYDROCHLORIDE) (TA) [Suspect]
     Indication: PARKINSON'S DISEASE
     Dosage: 1 MG (0.5 MG), PO
     Route: 048
     Dates: start: 20040604, end: 20040727
  2. PAXIL [Suspect]
     Indication: DEPRESSION
     Dosage: 20 MG;PO
     Route: 048
     Dates: start: 20040702, end: 20040727
  3. LOCHOL (FLUVASTATIN SODIUM ) (TA) [Suspect]
     Indication: HYPERLIPIDAEMIA
     Dosage: 30 MG; PO
     Route: 048
     Dates: start: 20040702, end: 20040727
  4. ALPRAZOLAM [Suspect]
     Indication: DEPRESSION
     Dosage: 0.4 MG (0.4 MG), PO
     Route: 048
     Dates: start: 20040618, end: 20040726
  5. NEODOPASOL (MADOPAR) (TA) [Concomitant]

REACTIONS (2)
  - ANOREXIA [None]
  - LIVER DISORDER [None]
